FAERS Safety Report 9425891 (Version 1)
Quarter: 2013Q3

REPORT INFORMATION
  Report Type: Spontaneous
  Country: ES (occurrence: ES)
  Receive Date: 20130729
  Receipt Date: 20130729
  Transmission Date: 20140515
  Serious: Yes (Other)
  Sender: FDA-Public Use
  Company Number: ES-UCBSA-092515

PATIENT
  Age: 70 Year
  Sex: Female

DRUGS (2)
  1. VIMPAT [Suspect]
     Indication: EPILEPSY
     Dosage: 50 MG
     Route: 048
     Dates: start: 20130614, end: 2013
  2. EXFORGE [Concomitant]
     Indication: HYPERTENSION
     Dosage: 10 MG/160 MG
     Route: 048

REACTIONS (2)
  - Palpitations [Recovered/Resolved]
  - Hypertension [Recovered/Resolved]
